FAERS Safety Report 14154731 (Version 1)
Quarter: 2017Q4

REPORT INFORMATION
  Report Type: Spontaneous
  Country: US (occurrence: US)
  Receive Date: 20171102
  Receipt Date: 20171102
  Transmission Date: 20180321
  Serious: No
  Sender: FDA-Public Use
  Company Number: US-009507513-1710USA008445

PATIENT
  Sex: Female
  Weight: 108.39 kg

DRUGS (1)
  1. NEXPLANON [Suspect]
     Active Substance: ETONOGESTREL
     Dosage: 1 DF, UNK
     Route: 059
     Dates: start: 20170630, end: 20171004

REACTIONS (3)
  - Migration of implanted drug [Recovered/Resolved]
  - Fat tissue increased [Unknown]
  - No adverse event [Unknown]

NARRATIVE: CASE EVENT DATE: 2017
